FAERS Safety Report 4686063-7 (Version None)
Quarter: 2005Q2

REPORT INFORMATION
  Report Type: 
  Country: None (occurrence: None)
  Receive Date: 20050609
  Receipt Date: 20050510
  Transmission Date: 20051028
  Serious: Yes (Other)
  Sender: FDA-Public Use
  Company Number: PHNU2005DE01917

PATIENT
  Age: 40 Year
  Sex: Female

DRUGS (2)
  1. LEPONEX / CLOZARIL (CLOZAPINE) [Suspect]
     Indication: SCHIZOPHRENIA
     Route: 048
     Dates: start: 19970101, end: 20050801
  2. LEPONEX / CLOZARIL (CLOZAPINE) [Suspect]
     Route: 048

REACTIONS (6)
  - ANAEMIA [None]
  - ANTINUCLEAR ANTIBODY NEGATIVE [None]
  - HEPATIC ENZYME ABNORMAL [None]
  - LEUKOCYTOSIS [None]
  - PLEURAL EFFUSION [None]
  - PYREXIA [None]
